FAERS Safety Report 4900776-0 (Version None)
Quarter: 2006Q1

REPORT INFORMATION
  Report Type: 
  Country: None (occurrence: None)
  Receive Date: 20060201
  Receipt Date: 20060123
  Transmission Date: 20060701
  Serious: Yes (Life-Threatening, Hospitalization)
  Sender: FDA-Public Use
  Company Number: CHNY2006ES00546

PATIENT
  Age: 58 Year
  Sex: Female
  Weight: 65 kg

DRUGS (4)
  1. NICOTINE [Suspect]
     Indication: EX-SMOKER
     Dosage: TRANSDERMAL
     Route: 062
     Dates: start: 20040601, end: 20040614
  2. NICOTINE [Suspect]
     Indication: EX-SMOKER
     Dosage: TRANSDERMAL
     Route: 062
     Dates: start: 20050201, end: 20050228
  3. ZYNTABAC (BUPROPION HYDROCHLORIDE) [Suspect]
     Indication: EX-SMOKER
     Dosage: SEE IMAGE
     Dates: start: 20040601, end: 20040614
  4. ZYNTABAC (BUPROPION HYDROCHLORIDE) [Suspect]
     Indication: EX-SMOKER
     Dosage: SEE IMAGE
     Dates: start: 20050201, end: 20050228

REACTIONS (3)
  - AGRANULOCYTOSIS [None]
  - ANAL ABSCESS [None]
  - SEPSIS [None]
